FAERS Safety Report 20910376 (Version 1)
Quarter: 2022Q2

REPORT INFORMATION
  Report Type: Spontaneous
  Country: US (occurrence: None)
  Receive Date: 20220602
  Receipt Date: 20220602
  Transmission Date: 20220721
  Serious: No
  Sender: FDA-Public Use
  Company Number: None

PATIENT
  Age: 49 Year
  Sex: Male
  Weight: 110.25 kg

DRUGS (2)
  1. ILLUCCIX [Suspect]
     Active Substance: GALLIUM GA-68 GOZETOTIDE
     Indication: Prostate cancer
     Dosage: FREQUENCY : ONCE;?
     Route: 040
     Dates: start: 20220301, end: 20220501
  2. Ga-68 gozetotide PSMA [Concomitant]
     Dates: start: 20220531, end: 20220531

REACTIONS (2)
  - Injection site pain [None]
  - Injection site discomfort [None]

NARRATIVE: CASE EVENT DATE: 20220531
